FAERS Safety Report 4390584-4 (Version None)
Quarter: 2004Q2

REPORT INFORMATION
  Report Type: 
  Country: None (occurrence: None)
  Receive Date: 20040630
  Receipt Date: 20040618
  Transmission Date: 20050107
  Serious: Yes (Disabling, Congenital Anomaly)
  Sender: FDA-Public Use
  Company Number: 200412039GDS

PATIENT
  Age: 12 Month
  Sex: Male
  Weight: 2.99 kg

DRUGS (2)
  1. CIPROFLOXACIN [Suspect]
     Indication: CERVICITIS
     Dosage: 500 MG, BID, ORAL
     Route: 048
     Dates: start: 20030401
  2. CIPROFLOXACIN [Suspect]
     Indication: STREPTOCOCCAL INFECTION
     Dosage: 500 MG, BID, ORAL
     Route: 048
     Dates: start: 20030401

REACTIONS (5)
  - DEVELOPMENTAL COORDINATION DISORDER [None]
  - DRUG EXPOSURE DURING PREGNANCY [None]
  - NEONATAL DISORDER [None]
  - PREMATURE BABY [None]
  - VISUAL DISTURBANCE [None]
